FAERS Safety Report 8996163 (Version 3)
Quarter: 2013Q2

REPORT INFORMATION
  Report Type: Report from Study
  Country: JP (occurrence: JP)
  Receive Date: 20130103
  Receipt Date: 20130610
  Transmission Date: 20140414
  Serious: Yes (Other)
  Sender: FDA-Public Use
  Company Number: JP-OTSUKA-JP-2012-17285

PATIENT
  Age: 83 Year
  Sex: Male
  Weight: 60.2 kg

DRUGS (6)
  1. SAMSCA [Suspect]
     Indication: FLUID RETENTION
     Dosage: 15 MG MILLIGRAM(S), QAM
     Route: 048
     Dates: start: 20120921, end: 20121001
  2. LASIX [Concomitant]
     Indication: CARDIAC FAILURE
     Dosage: 20 MG MILLIGRAM(S), DAILY DOSE
     Route: 048
  3. NU-LOTAN [Concomitant]
     Dosage: 12.5 MG MILLIGRAM(S), DAILY DOSE
     Route: 048
  4. FLUITRAN [Concomitant]
     Indication: CARDIAC FAILURE
     Dosage: 2 MG MILLIGRAM(S), DAILY DOSE
     Route: 048
  5. ZYLORIC [Concomitant]
     Dosage: 100 MG MILLIGRAM(S), DAILY DOSE
     Route: 048
  6. WARFARIN [Concomitant]
     Dosage: 2.25 MG MILLIGRAM(S), DAILY DOSE
     Route: 048

REACTIONS (2)
  - Blood urea increased [Recovering/Resolving]
  - Thirst [Recovering/Resolving]
